FAERS Safety Report 7783189-6 (Version None)
Quarter: 2011Q3

REPORT INFORMATION
  Report Type: 
  Country: None (occurrence: None)
  Receive Date: 20110928
  Receipt Date: 20091014
  Transmission Date: 20111222
  Serious: No
  Sender: FDA-Public Use
  Company Number: US-MYLANLABS-2009S1018075

PATIENT

DRUGS (2)
  1. NITRGLYCERIN TRANSDERMAL SYSTEM [Suspect]
     Dosage: Q12HRS
     Route: 062
  2. FENTANYL-100 [Suspect]
     Route: 062

REACTIONS (2)
  - NO ADVERSE EVENT [None]
  - INCORRECT DRUG ADMINISTRATION DURATION [None]
